FAERS Safety Report 24849767 (Version 1)
Quarter: 2025Q1

REPORT INFORMATION
  Report Type: Spontaneous
  Country: US (occurrence: US)
  Receive Date: 20250116
  Receipt Date: 20250116
  Transmission Date: 20250409
  Serious: Yes (Other)
  Sender: UCB
  Company Number: US-UCBSA-2025002146

PATIENT
  Sex: Female

DRUGS (1)
  1. KEPPRA [Suspect]
     Active Substance: LEVETIRACETAM
     Indication: Seizure
     Dosage: 500 MILLIGRAM, ONCE DAILY (QD)
     Dates: start: 202410

REACTIONS (8)
  - Seizure [Unknown]
  - Paraplegia [Unknown]
  - Suicidal ideation [Unknown]
  - Decreased appetite [Unknown]
  - Weight fluctuation [Unknown]
  - Visual impairment [Unknown]
  - Mood altered [Unknown]
  - Inappropriate schedule of product administration [Unknown]
